FAERS Safety Report 17337090 (Version 1)
Quarter: 2020Q1

REPORT INFORMATION
  Report Type: Report from Study
  Country: US (occurrence: US)
  Receive Date: 20200129
  Receipt Date: 20200129
  Transmission Date: 20200409
  Serious: Yes (Other)
  Sender: FDA-Public Use
  Company Number: US-ROCHE-2531974

PATIENT

DRUGS (4)
  1. DIAZEPAM. [Suspect]
     Active Substance: DIAZEPAM
     Indication: PRODUCT USED FOR UNKNOWN INDICATION
  2. DIAZEPAM. [Suspect]
     Active Substance: DIAZEPAM
     Indication: PRODUCT USED FOR UNKNOWN INDICATION
  3. DIAZEPAM. [Suspect]
     Active Substance: DIAZEPAM
     Indication: NERVOUSNESS
     Dosage: SOME PATIENTS TOOK 30 TO 80 MG
     Route: 048
  4. DIAZEPAM. [Suspect]
     Active Substance: DIAZEPAM
     Indication: NERVOUSNESS
     Dosage: SOME PATIENTS TOOK 30 TO 80 MG
     Route: 042

REACTIONS (7)
  - Drug abuse [Unknown]
  - Intentional product misuse [Unknown]
  - Ataxia [Unknown]
  - Drug dependence [Unknown]
  - Coordination abnormal [Unknown]
  - Sedation [Unknown]
  - Intentional overdose [Unknown]
